FAERS Safety Report 23366995 (Version 1)
Quarter: 2024Q1

REPORT INFORMATION
  Report Type: Spontaneous
  Country: US (occurrence: None)
  Receive Date: 20240104
  Receipt Date: 20240104
  Transmission Date: 20240410
  Serious: Yes (Hospitalization, Other)
  Sender: FDA-Public Use
  Company Number: None

PATIENT
  Age: 15 Year
  Sex: Male

DRUGS (5)
  1. EPIDIOLEX [Suspect]
     Active Substance: CANNABIDIOL
     Indication: Lennox-Gastaut syndrome
     Dosage: 100MG BID ORAL?
     Route: 048
     Dates: start: 20220316
  2. VALPROATE [Concomitant]
     Active Substance: VALPROIC ACID
  3. CARNITINE [Concomitant]
     Active Substance: CARNITINE
  4. DIAZEPAM [Concomitant]
     Active Substance: DIAZEPAM
  5. BANZEL [Concomitant]
     Active Substance: RUFINAMIDE

REACTIONS (4)
  - Sedation [None]
  - Hypophagia [None]
  - Weight decreased [None]
  - Therapy change [None]

NARRATIVE: CASE EVENT DATE: 20240104
